FAERS Safety Report 5241050-5 (Version None)
Quarter: 2007Q1

REPORT INFORMATION
  Report Type: 
  Country: None (occurrence: None)
  Receive Date: 20070214
  Receipt Date: 20070214
  Transmission Date: 20070707
  Serious: Yes (Other)
  Sender: FDA-Public Use
  Company Number: None

PATIENT
  Age: 76 Year
  Sex: Male
  Weight: 69.9 kg

DRUGS (7)
  1. VISIPAQUE 320 [Suspect]
     Indication: CATHETERISATION CARDIAC
     Dosage: 110 ML IV
     Route: 042
     Dates: start: 20061120
  2. APAP TAB [Concomitant]
  3. HEPARIN [Concomitant]
  4. HYDROCHLOROTHIAZIDE [Concomitant]
  5. LOSARTAN POTASSIUM [Concomitant]
  6. NITROGLYCERIN [Concomitant]
  7. OMEPRAZOLE [Concomitant]

REACTIONS (1)
  - ANAPHYLACTIC REACTION [None]
